FAERS Safety Report 9143169 (Version 1)
Quarter: 2013Q1

REPORT INFORMATION
  Report Type: Spontaneous
  Country: US (occurrence: US)
  Receive Date: 20130306
  Receipt Date: 20130306
  Transmission Date: 20140127
  Serious: No
  Sender: FDA-Public Use
  Company Number: US-ENDO PHARMACEUTICALS INC.-OPER20110241

PATIENT
  Sex: Female

DRUGS (2)
  1. OPANA ER 30MG [Suspect]
     Indication: PRODUCT USED FOR UNKNOWN INDICATION
     Route: 048
     Dates: end: 20110917
  2. OXYCODONE [Concomitant]
     Indication: PROPHYLAXIS

REACTIONS (3)
  - Tremor [Unknown]
  - Restlessness [Unknown]
  - Insomnia [Unknown]
